FAERS Safety Report 4819728-4 (Version None)
Quarter: 2005Q4

REPORT INFORMATION
  Report Type: 
  Country: None (occurrence: None)
  Receive Date: 20051102
  Receipt Date: 20051019
  Transmission Date: 20060501
  Serious: Yes (Other)
  Sender: FDA-Public Use
  Company Number: 8012835

PATIENT
  Age: 10 Year
  Sex: Male

DRUGS (2)
  1. METADATE CD [Suspect]
     Indication: ATTENTION DEFICIT/HYPERACTIVITY DISORDER
     Dosage: 20 MG /D PO
     Route: 048
     Dates: start: 20050201, end: 20050920
  2. CLONIDINE [Concomitant]

REACTIONS (3)
  - DYSTONIA [None]
  - MUSCULOSKELETAL STIFFNESS [None]
  - STARING [None]
